FAERS Safety Report 8563507 (Version 3)
Quarter: 2013Q2

REPORT INFORMATION
  Report Type: Report from Study
  Country: US (occurrence: US)
  Receive Date: 20120515
  Receipt Date: 20130425
  Transmission Date: 20140414
  Serious: Yes (Hospitalization)
  Sender: FDA-Public Use
  Company Number: US-BAXTER-2010BH008156

PATIENT
  Age: 61 Year
  Sex: Male
  Weight: 83 kg

DRUGS (7)
  1. EXELON [Concomitant]
     Indication: PRODUCT USED FOR UNKNOWN INDICATION
     Route: 062
     Dates: start: 200905
  2. TEMAZEPAM [Concomitant]
     Indication: PRODUCT USED FOR UNKNOWN INDICATION
     Route: 048
     Dates: start: 2007
  3. BENICAR [Concomitant]
     Indication: PRODUCT USED FOR UNKNOWN INDICATION
     Route: 048
  4. TYLENOL [Concomitant]
     Indication: MIGRAINE
  5. GAMMAGARD LIQUID [Suspect]
     Indication: DEMENTIA ALZHEIMER^S TYPE
     Dosage: 200 MG/KG BODY WEIGHT
     Route: 042
     Dates: start: 20100226, end: 20100226
  6. GAMMAGARD LIQUID [Suspect]
     Dosage: 200 MG/KG BODY WEIGHT
     Route: 042
     Dates: start: 20091106, end: 20100226
  7. GAMMAGARD LIQUID [Suspect]
     Dosage: 200 MG/KG BODY WEIGHT
     Route: 042
     Dates: start: 20100312, end: 20120312

REACTIONS (1)
  - Pulmonary embolism [Recovered/Resolved]
